FAERS Safety Report 10735280 (Version 1)
Quarter: 2015Q1

REPORT INFORMATION
  Report Type: Spontaneous
  Country: CN (occurrence: CN)
  Receive Date: 20150125
  Receipt Date: 20150125
  Transmission Date: 20150721
  Serious: Yes (Other)
  Sender: FDA-Public Use
  Company Number: CN-ROCHE-1525342

PATIENT

DRUGS (5)
  1. CYCLOPHOSPHAMIDE. [Concomitant]
     Active Substance: CYCLOPHOSPHAMIDE
     Indication: LYMPHOMA
  2. PREDNISONE. [Concomitant]
     Active Substance: PREDNISONE
     Indication: LYMPHOMA
  3. MABTHERA [Suspect]
     Active Substance: RITUXIMAB
     Indication: LYMPHOMA
     Route: 065
  4. VINCRISTINE [Concomitant]
     Active Substance: VINCRISTINE
     Indication: LYMPHOMA
  5. EPIRUBICIN [Concomitant]
     Active Substance: EPIRUBICIN
     Indication: LYMPHOMA

REACTIONS (1)
  - Traumatic lung injury [Unknown]
